FAERS Safety Report 10632355 (Version 2)
Quarter: 2014Q4

REPORT INFORMATION
  Report Type: Spontaneous
  Country: US (occurrence: US)
  Receive Date: 20141205
  Receipt Date: 20141205
  Transmission Date: 20150529
  Serious: No
  Sender: FDA-Public Use
  Company Number: US-BRISTOL-MYERS SQUIBB COMPANY-21220272

PATIENT
  Age: 84 Year
  Sex: Female

DRUGS (7)
  1. FISH OIL [Concomitant]
     Active Substance: FISH OIL
  2. CENTRUM [Concomitant]
     Active Substance: VITAMINS
  3. ORENCIA [Suspect]
     Active Substance: ABATACEPT
     Dosage: 750MG AT WEEKS 0,2,4
     Route: 042
  4. CALCIUM + VITAMIN D [Concomitant]
     Active Substance: CALCIUM\VITAMIN D
  5. LYRICA [Concomitant]
     Active Substance: PREGABALIN
  6. B COMPLEX 100 [Concomitant]
  7. ENBREL [Suspect]
     Active Substance: ETANERCEPT

REACTIONS (1)
  - Malaise [Unknown]

NARRATIVE: CASE EVENT DATE: 20140717
